FAERS Safety Report 7402231-5 (Version None)
Quarter: 2011Q2

REPORT INFORMATION
  Report Type: 
  Country: None (occurrence: None)
  Receive Date: 20110401
  Receipt Date: 20110318
  Transmission Date: 20111010
  Serious: Yes (Hospitalization)
  Sender: FDA-Public Use
  Company Number: IDR-00470

PATIENT
  Age: 47 Year
  Sex: Male

DRUGS (2)
  1. IMOVANE (ZOPICLONE) [Suspect]
     Dosage: 12 DF ONCE ORAL FORMULATION: TABLET
     Route: 048
     Dates: start: 20110227
  2. AVLOCARDYL (PROPRANOLOL) [Suspect]
     Dosage: 160 MG DAILY ORAL FORMULATION: CAPSULE CONTR REL
     Route: 048

REACTIONS (5)
  - INCORRECT DOSE ADMINISTERED [None]
  - HYPOTENSION [None]
  - MARITAL PROBLEM [None]
  - SINUS BRADYCARDIA [None]
  - TOXICITY TO VARIOUS AGENTS [None]
